FAERS Safety Report 11396045 (Version 1)
Quarter: 2015Q3

REPORT INFORMATION
  Report Type: Spontaneous
  Country: HK (occurrence: HK)
  Receive Date: 20150819
  Receipt Date: 20150819
  Transmission Date: 20151125
  Serious: Yes (Death, Hospitalization)
  Sender: FDA-Public Use
  Company Number: HK-UNICHEM LABORATORIES LIMITED-UCM201504-000251

PATIENT
  Age: 17 Year
  Sex: Female

DRUGS (2)
  1. AMLODIPINE [Suspect]
     Active Substance: AMLODIPINE BESYLATE
  2. PROPRANOLOL [Suspect]
     Active Substance: PROPRANOLOL\PROPRANOLOL HYDROCHLORIDE

REACTIONS (5)
  - Overdose [Fatal]
  - Hypotension [Fatal]
  - Acute kidney injury [Fatal]
  - Amylase increased [Fatal]
  - Shock [Fatal]
